FAERS Safety Report 19106822 (Version 1)
Quarter: 2021Q2

REPORT INFORMATION
  Report Type: Spontaneous
  Country: FR (occurrence: FR)
  Receive Date: 20210408
  Receipt Date: 20210408
  Transmission Date: 20210717
  Serious: Yes (Other)
  Sender: FDA-Public Use
  Company Number: NVSC2021FR071915

PATIENT
  Age: 14 Year
  Sex: Male
  Weight: 92 kg

DRUGS (6)
  1. CYCLOSPORINE. [Suspect]
     Active Substance: CYCLOSPORINE
     Indication: APLASTIC ANAEMIA
     Dosage: 12 MG/KG, QD (6 MG/KG, 2X/DAY)
     Route: 048
  2. ATGAM [Suspect]
     Active Substance: EQUINE THYMOCYTE IMMUNE GLOBULIN
     Indication: APLASTIC ANAEMIA
     Dosage: 3640 MG, QD (40 MG/KG, DAILY (40MG/KG/D = 3640 MG))
     Route: 042
     Dates: start: 20191001
  3. VORICONAZOLE. [Concomitant]
     Active Substance: VORICONAZOLE
     Indication: PROPHYLAXIS
     Dosage: UNK
     Route: 048
     Dates: start: 20190928
  4. CEFTAZIDIME. [Concomitant]
     Active Substance: CEFTAZIDIME
     Indication: PYREXIA
     Dosage: 6 G, QD (2 G, 3X/DAY)
     Route: 042
     Dates: start: 20190927
  5. SOLU?MEDROL [Concomitant]
     Active Substance: METHYLPREDNISOLONE SODIUM SUCCINATE
     Indication: PREMEDICATION
     Dosage: 1 MG/KG, 2 HOURS BEFORE ATGAM
     Route: 042
     Dates: start: 20191001, end: 20191004
  6. POLARAMINE [Concomitant]
     Active Substance: DEXCHLORPHENIRAMINE MALEATE
     Indication: PREMEDICATION
     Dosage: 5 MG, QD (1X/DAY)
     Route: 042
     Dates: start: 20191001

REACTIONS (4)
  - Thrombocytopenia [Unknown]
  - Eyelid oedema [Recovered/Resolved]
  - Infusion related reaction [Unknown]
  - Urticaria [Recovered/Resolved]

NARRATIVE: CASE EVENT DATE: 20191003
